FAERS Safety Report 8615190-4 (Version None)
Quarter: 2012Q3

REPORT INFORMATION
  Report Type: 
  Country: None (occurrence: None)
  Receive Date: 20120823
  Receipt Date: 20120820
  Transmission Date: 20120928
  Serious: Yes (Other)
  Sender: FDA-Public Use
  Company Number: US-BAYER-2011-124169

PATIENT

DRUGS (3)
  1. ACID REFLUX MEDICATION [Concomitant]
  2. IRON [CITRIC ACID,FERROUS SULFATE] [Concomitant]
  3. ALKA-SELTZER ORIGINAL [Suspect]
     Indication: GASTROOESOPHAGEAL REFLUX DISEASE
     Route: 048

REACTIONS (3)
  - GASTRIC HAEMORRHAGE [None]
  - FAECES DISCOLOURED [None]
  - GASTRIC DISORDER [None]
